FAERS Safety Report 19045214 (Version 1)
Quarter: 2021Q1

REPORT INFORMATION
  Report Type: Spontaneous
  Country: US (occurrence: US)
  Receive Date: 20210322
  Receipt Date: 20210322
  Transmission Date: 20210420
  Serious: Yes (Other)
  Sender: FDA-Public Use
  Company Number: None

PATIENT
  Age: 1 Year
  Sex: Male
  Weight: 11.98 kg

DRUGS (1)
  1. ADYNOVATE [Suspect]
     Active Substance: ANTIHEMOPHILIC FACTOR, HUMAN RECOMBINANT
     Dosage: ?          OTHER STRENGTH:60 U/KG;?
     Route: 042
     Dates: start: 20181203, end: 20191011

REACTIONS (2)
  - Anti factor VIII antibody positive [None]
  - Factor VIII inhibition [None]

NARRATIVE: CASE EVENT DATE: 20190202
